FAERS Safety Report 4690420-2 (Version None)
Quarter: 2005Q2

REPORT INFORMATION
  Report Type: 
  Country: None (occurrence: None)
  Receive Date: 20050613
  Receipt Date: 20050531
  Transmission Date: 20051028
  Serious: Yes (Other)
  Sender: FDA-Public Use
  Company Number: 2005083920

PATIENT
  Sex: Female

DRUGS (2)
  1. DETROL [Suspect]
     Indication: ILL-DEFINED DISORDER
  2. DETROL LA [Concomitant]
     Indication: ILL-DEFINED DISORDER

REACTIONS (5)
  - ABDOMINAL PAIN [None]
  - CEREBROVASCULAR ACCIDENT [None]
  - CONSTIPATION [None]
  - DRUG INEFFECTIVE [None]
  - MYOCARDIAL INFARCTION [None]
